FAERS Safety Report 24636191 (Version 6)
Quarter: 2025Q3

REPORT INFORMATION
  Report Type: Spontaneous
  Country: TH (occurrence: TH)
  Receive Date: 20241119
  Receipt Date: 20250916
  Transmission Date: 20251021
  Serious: Yes (Other)
  Sender: BRISTOL-MYERS SQUIBB COMPANY
  Company Number: TH-IPSEN Group, Research and Development-2024-13496

PATIENT
  Age: 48 Year
  Sex: Male

DRUGS (8)
  1. OPDIVO [Suspect]
     Active Substance: NIVOLUMAB
     Indication: Renal cell carcinoma
     Dates: start: 20241009
  2. YERVOY [Suspect]
     Active Substance: IPILIMUMAB
     Indication: Renal cell carcinoma
  3. CABOMETYX [Suspect]
     Active Substance: CABOZANTINIB S-MALATE
     Indication: Renal cell carcinoma
     Dates: start: 20240523, end: 20240703
  4. CABOMETYX [Suspect]
     Active Substance: CABOZANTINIB S-MALATE
     Dates: start: 20240724
  5. CABOMETYX [Suspect]
     Active Substance: CABOZANTINIB S-MALATE
     Dosage: 40 MG, TWO CONSECUTIVE DAYS, FOLLOWED BY A DAY OFF
     Dates: start: 20240905, end: 20240925
  6. CABOMETYX [Suspect]
     Active Substance: CABOZANTINIB S-MALATE
     Dates: start: 20241002, end: 20241009
  7. CABOMETYX [Suspect]
     Active Substance: CABOZANTINIB S-MALATE
     Dates: start: 20250506, end: 20250519
  8. CABOMETYX [Suspect]
     Active Substance: CABOZANTINIB S-MALATE
     Dates: start: 20250523

REACTIONS (16)
  - Malignant neoplasm progression [Unknown]
  - Skin fissures [Unknown]
  - Hepatic enzyme increased [Unknown]
  - Alanine aminotransferase increased [Recovered/Resolved]
  - Aspartate aminotransferase increased [Recovered/Resolved]
  - Diarrhoea [Unknown]
  - Fatigue [Unknown]
  - Weight decreased [Unknown]
  - Decreased appetite [Unknown]
  - Dyspepsia [Unknown]
  - Dry skin [Unknown]
  - Herpes zoster [Unknown]
  - Tumour pain [Unknown]
  - Dyspnoea [Unknown]
  - Pneumothorax [Unknown]
  - Off label use [Unknown]

NARRATIVE: CASE EVENT DATE: 20240701
